FAERS Safety Report 6748441-1 (Version None)
Quarter: 2010Q2

REPORT INFORMATION
  Report Type: 
  Country: None (occurrence: None)
  Receive Date: 20100526
  Receipt Date: 20090508
  Transmission Date: 20101027
  Serious: Yes (Other)
  Sender: FDA-Public Use
  Company Number: 280012

PATIENT
  Age: 64 Year
  Sex: Female
  Weight: 74.8 kg

DRUGS (11)
  1. ACTIVELLA [Suspect]
     Indication: HOT FLUSH
     Dosage: ORAL
     Route: 048
     Dates: start: 20030201, end: 20051201
  2. PREMPRO [Suspect]
     Indication: HORMONE REPLACEMENT THERAPY
     Dosage: ORAL
     Route: 048
     Dates: start: 19960101, end: 20030101
  3. ESTRATEST [Suspect]
     Indication: HORMONE REPLACEMENT THERAPY
     Dates: start: 19940901, end: 19960901
  4. PROVERA [Suspect]
     Indication: HORMONE REPLACEMENT THERAPY
     Dosage: ORAL
     Route: 048
     Dates: start: 19930301, end: 19970601
  5. PREMARIN [Suspect]
     Indication: HORMONE REPLACEMENT THERAPY
     Dosage: ORAL
     Route: 048
     Dates: start: 19930301, end: 19940901
  6. GEMFIBROZIL [Concomitant]
  7. ZYRTEC [Concomitant]
  8. DIFLUCAN [Concomitant]
  9. SPIRONOLACTONE [Concomitant]
  10. HYZAAR /01284801/ (HYDROCHLOROTHIAZIDE, LOSARTAN POTASSIUM) [Concomitant]
  11. EVISTA /01303201/ (RALOXIFENE) [Concomitant]

REACTIONS (1)
  - BREAST CANCER [None]
